FAERS Safety Report 11618608 (Version 2)
Quarter: 2015Q4

REPORT INFORMATION
  Report Type: Spontaneous
  Country: AU (occurrence: AU)
  Receive Date: 20151012
  Receipt Date: 20151021
  Transmission Date: 20160304
  Serious: Yes (Hospitalization)
  Sender: FDA-Public Use
  Company Number: AU-ACCORD-034376

PATIENT
  Age: 70 Year
  Sex: Female

DRUGS (12)
  1. QUETIAPINE/QUETIAPINE FUMARATE [Concomitant]
     Dosage: AT NIGHT
  2. LAMOTRIGINE. [Concomitant]
     Active Substance: LAMOTRIGINE
  3. GLIPIZIDE. [Concomitant]
     Active Substance: GLIPIZIDE
  4. DOSULEPIN HYDROCHLORIDE [Interacting]
     Active Substance: DOTHIEPIN HYDROCHLORIDE
     Indication: DEPRESSION
     Dosage: PREVIOUSLY RECEIVED 225 MG
  5. ESTRADIOL. [Concomitant]
     Active Substance: ESTRADIOL
  6. ACETYLSALICYLIC ACID [Concomitant]
     Active Substance: ASPIRIN
  7. RAMIPRIL. [Concomitant]
     Active Substance: RAMIPRIL
  8. ESCITALOPRAM [Suspect]
     Active Substance: ESCITALOPRAM OXALATE
     Indication: DEPRESSION
  9. ATORVASTATIN [Concomitant]
     Active Substance: ATORVASTATIN
  10. BUPROPION/BUPROPION HYDROCHLORIDE [Interacting]
     Active Substance: BUPROPION HYDROCHLORIDE
     Indication: DEPRESSION
     Dosage: IN THE MRONING
     Route: 048
  11. METFORMIN [Concomitant]
     Active Substance: METFORMIN HYDROCHLORIDE
  12. LANTUS [Concomitant]
     Active Substance: INSULIN GLARGINE

REACTIONS (2)
  - Drug interaction [Unknown]
  - Hyponatraemia [Recovered/Resolved]
